FAERS Safety Report 19877078 (Version 1)
Quarter: 2021Q3

REPORT INFORMATION
  Report Type: Report from Study
  Country: CZ (occurrence: CZ)
  Receive Date: 20210923
  Receipt Date: 20210923
  Transmission Date: 20211014
  Serious: Yes (Other)
  Sender: FDA-Public Use
  Company Number: CZ-TEVA-2021-CZ-1956255

PATIENT
  Age: 34 Year
  Sex: Female

DRUGS (4)
  1. LETROX [Concomitant]
     Active Substance: LEVOTHYROXINE SODIUM
  2. VIGANTOL [Concomitant]
  3. ELOCOM [Concomitant]
     Active Substance: MOMETASONE FUROATE
  4. COPAXONE [Suspect]
     Active Substance: GLATIRAMER ACETATE
     Indication: MULTIPLE SCLEROSIS
     Route: 058
     Dates: start: 20180816

REACTIONS (5)
  - Immediate post-injection reaction [Recovered/Resolved]
  - Swelling face [Unknown]
  - Swelling of eyelid [Unknown]
  - Nausea [Recovered/Resolved]
  - Dyspnoea [Recovered/Resolved]

NARRATIVE: CASE EVENT DATE: 20210912
